FAERS Safety Report 18885091 (Version 1)
Quarter: 2021Q1

REPORT INFORMATION
  Report Type: Spontaneous
  Country: US (occurrence: US)
  Receive Date: 20210211
  Receipt Date: 20210211
  Transmission Date: 20210420
  Serious: Yes (Hospitalization)
  Sender: FDA-Public Use
  Company Number: None

PATIENT
  Age: 65 Year
  Sex: Male
  Weight: 83.42 kg

DRUGS (1)
  1. BAMLANIVIMAB 700 MG / 270ML [Suspect]
     Active Substance: BAMLANIVIMAB
     Indication: COVID-19
     Route: 042

REACTIONS (8)
  - Ageusia [None]
  - Lung opacity [None]
  - Diarrhoea [None]
  - Tobacco user [None]
  - Oropharyngeal pain [None]
  - Dyspnoea [None]
  - Cough [None]
  - Pyrexia [None]

NARRATIVE: CASE EVENT DATE: 20210107
